FAERS Safety Report 21798075 (Version 4)
Quarter: 2023Q1

REPORT INFORMATION
  Report Type: Spontaneous
  Country: CO (occurrence: CO)
  Receive Date: 20221230
  Receipt Date: 20230227
  Transmission Date: 20230417
  Serious: No
  Sender: FDA-Public Use
  Company Number: CO-PFIZER INC-PV202200127367

PATIENT
  Age: 9 Year
  Sex: Male

DRUGS (1)
  1. GENOTROPIN [Suspect]
     Active Substance: SOMATROPIN
     Dosage: 0.8 MG, DAILY
     Route: 058
     Dates: end: 20221216

REACTIONS (5)
  - Drug dose omission by device [Unknown]
  - Device breakage [Unknown]
  - Device leakage [Unknown]
  - Device occlusion [Unknown]
  - Device mechanical issue [Unknown]

NARRATIVE: CASE EVENT DATE: 20221216
